FAERS Safety Report 6566869-X (Version None)
Quarter: 2010Q1

REPORT INFORMATION
  Report Type: 
  Country: None (occurrence: None)
  Receive Date: 20100202
  Receipt Date: 20100128
  Transmission Date: 20100710
  Serious: Yes (Hospitalization)
  Sender: FDA-Public Use
  Company Number: B0629527A

PATIENT
  Sex: Male

DRUGS (6)
  1. FORTUM [Suspect]
     Dosage: 3G PER DAY
     Route: 042
     Dates: start: 20090326, end: 20090331
  2. CIFLOX [Suspect]
     Dosage: 1200MG PER DAY
     Route: 042
     Dates: start: 20090326, end: 20090331
  3. CLAMOXYL [Concomitant]
     Dosage: 2G PER DAY
     Route: 048
     Dates: start: 20090329
  4. DIAMOX SRC [Concomitant]
     Dosage: 500MG PER DAY
     Route: 048
  5. CAPTOPRIL [Concomitant]
     Dosage: 31.25MG PER DAY
     Route: 048
  6. ALDACTONE [Concomitant]
     Dosage: 25MG PER DAY
     Route: 048

REACTIONS (2)
  - PETECHIAE [None]
  - THROMBOCYTOPENIA [None]
